FAERS Safety Report 13073826 (Version 2)
Quarter: 2017Q1

REPORT INFORMATION
  Report Type: Spontaneous
  Country: US (occurrence: US)
  Receive Date: 20161229
  Receipt Date: 20170130
  Transmission Date: 20170428
  Serious: Yes (Hospitalization, Other)
  Sender: FDA-Public Use
  Company Number: US-SA-2016SA200889

PATIENT
  Age: 56 Year
  Sex: Male
  Weight: 127 kg

DRUGS (4)
  1. MULTAQ [Suspect]
     Active Substance: DRONEDARONE
     Indication: ATRIAL FIBRILLATION
     Route: 065
     Dates: start: 20150522, end: 20150525
  2. SOTALOL. [Suspect]
     Active Substance: SOTALOL
     Route: 065
  3. ELIQUIS [Concomitant]
     Active Substance: APIXABAN
     Dates: start: 20150522, end: 20150525
  4. FLECAINIDE [Suspect]
     Active Substance: FLECAINIDE
     Route: 065

REACTIONS (6)
  - Haemorrhage [Unknown]
  - Chest pain [Recovered/Resolved]
  - Apparent death [Unknown]
  - Cardiac disorder [Recovered/Resolved]
  - Atrial fibrillation [Unknown]
  - Drug ineffective [Unknown]

NARRATIVE: CASE EVENT DATE: 20150525
